FAERS Safety Report 8858677 (Version 1)
Quarter: 2012Q4

REPORT INFORMATION
  Report Type: 
  Country: IT (occurrence: IT)
  Receive Date: 20121024
  Receipt Date: 20121024
  Transmission Date: 20130627
  Serious: Yes (Hospitalization, Other)
  Sender: FDA-Public Use
  Company Number: IT-ELI_LILLY_AND_COMPANY-IT201210004126

PATIENT
  Age: 66 Year
  Sex: Male

DRUGS (4)
  1. EFIENT [Suspect]
     Indication: ACUTE CORONARY SYNDROME
     Dosage: 10 mg, unknown
     Route: 048
     Dates: start: 201205, end: 20121012
  2. ACETYLSALICYLIC ACID [Concomitant]
     Indication: ACUTE CORONARY SYNDROME
     Dosage: 100 mg, UNK
     Dates: start: 201205, end: 20121012
  3. ACE INHIBITORS [Concomitant]
  4. BETA BLOCKING AGENTS [Concomitant]

REACTIONS (2)
  - Gastrointestinal haemorrhage [Recovered/Resolved]
  - Gastric polyps [Recovered/Resolved]
